FAERS Safety Report 4511821-9 (Version None)
Quarter: 2004Q4

REPORT INFORMATION
  Report Type: 
  Country: None (occurrence: None)
  Receive Date: 20041123
  Receipt Date: 20041112
  Transmission Date: 20050328
  Serious: Yes (Hospitalization)
  Sender: FDA-Public Use
  Company Number: 200415500BCC

PATIENT
  Age: 57 Year
  Sex: Female
  Weight: 90.7194 kg

DRUGS (7)
  1. ASPIRIN [Suspect]
     Indication: CARDIAC DISORDER
     Dosage: 325 MG, QD, ORAL
     Route: 048
     Dates: start: 20030101
  2. AVAPRO [Concomitant]
  3. CRESTOR [Concomitant]
  4. NORVASC [Concomitant]
  5. HYDROCHLOROTHIAZIDE [Concomitant]
  6. EFFEXOR [Concomitant]
  7. AMBIEN [Concomitant]

REACTIONS (4)
  - ALOPECIA [None]
  - HEART RATE INCREASED [None]
  - HEART RATE IRREGULAR [None]
  - SENSORY DISTURBANCE [None]
